FAERS Safety Report 8112055-1 (Version None)
Quarter: 2012Q1

REPORT INFORMATION
  Report Type: 
  Country: None (occurrence: None)
  Receive Date: 20120131
  Receipt Date: 20120119
  Transmission Date: 20120608
  Serious: Yes (Other)
  Sender: FDA-Public Use
  Company Number: TPA2012A00411

PATIENT
  Age: 59 Year
  Sex: Male
  Weight: 88.4514 kg

DRUGS (7)
  1. GLYBURIDE/METFORMIN (METFORMIN HYDROCHLORIDE, GLIBENCLAMIDE) (TABLETS) [Concomitant]
  2. AMLODIPINE [Concomitant]
  3. PRAVASTATIN [Concomitant]
  4. SIMVASTATIN [Concomitant]
  5. ACTOS [Suspect]
     Indication: TYPE 2 DIABETES MELLITUS
     Dosage: 30 MG, ORAL
     Route: 048
     Dates: start: 20070101
  6. RAMIPRIL [Concomitant]
  7. CARVEDILOL [Concomitant]

REACTIONS (1)
  - CORONARY ARTERY OCCLUSION [None]
